FAERS Safety Report 12638691 (Version 2)
Quarter: 2016Q3

REPORT INFORMATION
  Report Type: Spontaneous
  Country: US (occurrence: US)
  Receive Date: 20160809
  Receipt Date: 20160906
  Transmission Date: 20161109
  Serious: Yes (Other)
  Sender: FDA-Public Use
  Company Number: US-SA-2016SA141447

PATIENT
  Age: 59 Year
  Sex: Female
  Weight: 98.8 kg

DRUGS (3)
  1. LANTUS SOLOSTAR [Suspect]
     Active Substance: INSULIN GLARGINE
     Indication: TYPE 2 DIABETES MELLITUS
     Dosage: DOSE:30 UNIT(S)
     Route: 065
  2. SOLOSTAR [Concomitant]
     Active Substance: DEVICE
     Indication: TYPE 2 DIABETES MELLITUS
  3. HUMALOG [Concomitant]
     Active Substance: INSULIN LISPRO
     Dosage: 6-12 UNITS WITH EACH MEAL THREE TIMES A DAY BASED ON HER BLOOD SUGAR

REACTIONS (2)
  - Intentional product misuse [Unknown]
  - Visual impairment [Recovering/Resolving]
